FAERS Safety Report 8264232-7 (Version None)
Quarter: 2012Q2

REPORT INFORMATION
  Report Type: 
  Country: None (occurrence: None)
  Receive Date: 20120406
  Receipt Date: 20120327
  Transmission Date: 20120825
  Serious: Yes (Hospitalization)
  Sender: FDA-Public Use
  Company Number: CA-JNJFOC-20120202703

PATIENT
  Sex: Female
  Weight: 70 kg

DRUGS (8)
  1. ANTI-INFLAMMATORY DRUG [Concomitant]
     Route: 065
  2. PAIN MEDICATION [Concomitant]
     Route: 065
  3. REMICADE [Suspect]
     Indication: CROHN'S DISEASE
     Route: 042
     Dates: start: 20111011
  4. SYNTHROID [Concomitant]
     Route: 065
  5. DROSPIRENONE AND ETHINYL ESTRADIOL [Concomitant]
     Route: 065
  6. IMOVANE [Concomitant]
     Dosage: DOSE: 1/2 OF 7.5 MG
     Route: 065
  7. SUPEUDOL [Concomitant]
     Route: 065
  8. ELAVIL [Concomitant]
     Route: 065

REACTIONS (1)
  - NEPHROLITHIASIS [None]
